FAERS Safety Report 5422691-9 (Version None)
Quarter: 2007Q3

REPORT INFORMATION
  Report Type: 
  Country: None (occurrence: None)
  Receive Date: 20070822
  Receipt Date: 20070813
  Transmission Date: 20080115
  Serious: Yes (Hospitalization, Other)
  Sender: FDA-Public Use
  Company Number: US-PFIZER INC-2007043293

PATIENT
  Sex: Female

DRUGS (4)
  1. CELEBREX [Suspect]
     Indication: SCIATICA
  2. CELEBREX [Suspect]
     Indication: OSTEOARTHRITIS
  3. CELEBREX [Suspect]
     Indication: BACK PAIN
  4. CELEBREX [Suspect]
     Indication: ARTHRALGIA

REACTIONS (3)
  - CORONARY ARTERY OCCLUSION [None]
  - DEPRESSION [None]
  - MYOCARDIAL INFARCTION [None]
